FAERS Safety Report 10784904 (Version 1)
Quarter: 2015Q1

REPORT INFORMATION
  Report Type: Spontaneous
  Country: JP (occurrence: None)
  Receive Date: 20150209
  Receipt Date: 20150209
  Transmission Date: 20150721
  Serious: Yes (Hospitalization)
  Sender: FDA-Public Use
  Company Number: INT_00682_2015

PATIENT
  Age: 44 Year
  Sex: Female

DRUGS (5)
  1. CISPLATIN (CISPLATIN) (HQ SPECIALTY) [Suspect]
     Active Substance: CISPLATIN
     Indication: THYMOMA
     Dosage: 8 WEEKS 0 DAYS, 30 MG/M2 ON DAY 1 EVRY 7 DAYS FOR 8 CYCLES
  2. ETOPOSIDE (ETOPOSIDE) [Suspect]
     Active Substance: ETOPOSIDE
     Indication: THYMOMA
     Dosage: 8 WEEKS 0 DAYS, 80 MG/M2 ON DAYS 1 TO 3 EVERY 7 DAYS FOR 8 CYCLES?
  3. DOXORUBICIN (DOXORUBICIN) [Suspect]
     Active Substance: DOXORUBICIN
     Indication: THYMOMA
     Dosage: 8 WEEKS 0 DAYS, ON DAY 1 EVERY 7 DAYS FOR 8 CYCLES?
  4. METHYLPREDNISOLONE (METHYLPREDNISOLONE) [Suspect]
     Active Substance: METHYLPREDNISOLONE
     Indication: THYMOMA
     Dosage: 100 MG/BODY WEIGHT DAYS 1-4 AND 500 MG/BODY WEIGHT DAYS 5-6)?
  5. VINCRISTINE (VINCRISTINE) [Suspect]
     Active Substance: VINCRISTINE
     Indication: THYMOMA
     Dosage: 1 MG/M2 ON DAY 1 EVERY 7 DAYS FOR 8 CYCLES

REACTIONS (3)
  - Myasthenia gravis crisis [None]
  - Respiratory disorder [None]
  - Thrombocytopenia [None]
